FAERS Safety Report 9868158 (Version 1)
Quarter: 2014Q1

REPORT INFORMATION
  Report Type: Spontaneous
  Country: FR (occurrence: FR)
  Receive Date: 20140204
  Receipt Date: 20140204
  Transmission Date: 20141002
  Serious: Yes (Hospitalization)
  Sender: FDA-Public Use
  Company Number: PHHY2014FR011722

PATIENT
  Age: 69 Year
  Sex: Male

DRUGS (2)
  1. AFINITOR [Suspect]
     Indication: MALIGNANT PERITONEAL NEOPLASM
     Dosage: 10 MG, QD
     Route: 048
     Dates: start: 20131101, end: 20131218
  2. SANDOSTATIN [Suspect]
     Indication: MALIGNANT PERITONEAL NEOPLASM
     Route: 048
     Dates: start: 20131101, end: 20131218

REACTIONS (2)
  - Hyperglycaemia [Recovered/Resolved]
  - Hypokalaemia [Recovered/Resolved]
